FAERS Safety Report 8165271-7 (Version None)
Quarter: 2012Q1

REPORT INFORMATION
  Report Type: 
  Country: None (occurrence: None)
  Receive Date: 20120222
  Receipt Date: 20120222
  Transmission Date: 20120608
  Serious: No
  Sender: FDA-Public Use
  Company Number: None

PATIENT
  Age: 70 Year
  Sex: Female

DRUGS (1)
  1. STERILIDS [Suspect]
     Indication: BLEPHARITIS
     Dates: start: 20120211

REACTIONS (2)
  - BURNING SENSATION [None]
  - ERYTHEMA [None]
